FAERS Safety Report 12539777 (Version 1)
Quarter: 2016Q3

REPORT INFORMATION
  Report Type: Spontaneous
  Country: None (occurrence: None)
  Receive Date: 20160707
  Receipt Date: 20160707
  Transmission Date: 20161109
  Serious: Yes (Hospitalization)
  Sender: FDA-Public Use
  Company Number: None

PATIENT
  Age: 67 Year
  Sex: Female

DRUGS (7)
  1. SYNTHROID [Concomitant]
     Active Substance: LEVOTHYROXINE SODIUM
  2. LOSARTAN. [Concomitant]
     Active Substance: LOSARTAN
  3. TECNU EXTREME [Suspect]
     Active Substance: HOMEOPATHICS
     Indication: DERMATITIS CONTACT
     Dosage: N/A 2 TIMES 060
     Dates: start: 20160527
  4. LOVAZA [Concomitant]
     Active Substance: OMEGA-3-ACID ETHYL ESTERS
  5. ATORVASTATIAN [Concomitant]
  6. MULTIVITAMIN [Concomitant]
     Active Substance: VITAMINS
  7. CALCIUM [Concomitant]
     Active Substance: CALCIUM

REACTIONS (1)
  - Swelling [None]

NARRATIVE: CASE EVENT DATE: 20160530
